FAERS Safety Report 19962293 (Version 1)
Quarter: 2021Q4

REPORT INFORMATION
  Report Type: Spontaneous
  Country: US (occurrence: US)
  Receive Date: 20211018
  Receipt Date: 20211018
  Transmission Date: 20220303
  Serious: No
  Sender: FDA-Public Use
  Company Number: US-BOEHRINGERINGELHEIM-2021-BI-132937

PATIENT
  Sex: Female

DRUGS (2)
  1. SPIRIVA RESPIMAT [Suspect]
     Active Substance: TIOTROPIUM BROMIDE
     Indication: Chronic obstructive pulmonary disease
     Dosage: 2.5MCG BUT I ONLY TAKE 1 PUFF A DAY, PER MY PRIMARY CARE PROVIDER
     Dates: start: 20210928, end: 20211007
  2. SPIRIVA RESPIMAT [Suspect]
     Active Substance: TIOTROPIUM BROMIDE
     Indication: Asthma
     Dosage: 2.5MCG/2.5MCG 2 PUFFS ONCE A DAY
     Dates: start: 20211009, end: 20211012

REACTIONS (5)
  - Pain [Not Recovered/Not Resolved]
  - Gastric disorder [Recovered/Resolved]
  - Anal incontinence [Recovered/Resolved]
  - Intentional product misuse [Unknown]
  - Off label use [Unknown]

NARRATIVE: CASE EVENT DATE: 20210929
